FAERS Safety Report 10423392 (Version 1)
Quarter: 2014Q3

REPORT INFORMATION
  Report Type: Spontaneous
  Country: US (occurrence: None)
  Receive Date: 20140722
  Receipt Date: 20140722
  Transmission Date: 20150326
  Serious: No
  Sender: FDA-Public Use
  Company Number: 163-10004-14062914

PATIENT
  Age: 57 Year
  Sex: Female

DRUGS (9)
  1. IBUPROFEN (IBUPROFEN) (UNKNOWN) [Concomitant]
  2. OTEZLA [Suspect]
     Active Substance: APREMILAST
     Indication: PSORIATIC ARTHROPATHY
     Dosage: NOT PROVIDED, PO
     Route: 048
  3. VOLTAREN [Concomitant]
     Active Substance: DICLOFENAC SODIUM
  4. PRILOSEC (OMEPRAZOLE) (UNKNOWN) [Concomitant]
  5. VANOS (FLUOCINONIDE) [Concomitant]
  6. MAGNESIUM (MAGNESIUM) (UNKNOWN) [Concomitant]
  7. TYLENOL PM (TYLENOL PM) [Concomitant]
  8. THERACAL D (OTHER THERAPEUTIC PRODUCTS) (UNKNOWN) [Concomitant]
  9. PROBIOTIC (BIFIDOBACTERIUM LACTIS) (UNKNOWN) [Concomitant]

REACTIONS (1)
  - Nausea [None]

NARRATIVE: CASE EVENT DATE: 201406
